FAERS Safety Report 13157964 (Version 1)
Quarter: 2017Q1

REPORT INFORMATION
  Report Type: Spontaneous
  Country: US (occurrence: US)
  Receive Date: 20170124
  Receipt Date: 20170124
  Transmission Date: 20170428
  Serious: Yes (Other)
  Sender: FDA-Public Use
  Company Number: None

PATIENT
  Age: 64 Year
  Sex: Female
  Weight: 47.25 kg

DRUGS (8)
  1. TRAMADOL. [Suspect]
     Active Substance: TRAMADOL
     Indication: ARTHRALGIA
     Dosage: ?          QUANTITY:1 TABLET(S);?
     Route: 048
     Dates: start: 20170119, end: 20170119
  2. VIT. D, FOLIC ACID, VIT. B - COMPLEX [Concomitant]
     Active Substance: FOLIC ACID\VITAMINS
  3. VIT. D3 [Concomitant]
  4. FISH OIL OMEGA-3 [Concomitant]
  5. NAPROSYN [Concomitant]
     Active Substance: NAPROXEN
  6. D2 [Concomitant]
  7. NATROL EXTRA STRENGTH TUMERIC [Concomitant]
  8. VITAMIN D3 [Concomitant]
     Active Substance: CHOLECALCIFEROL

REACTIONS (13)
  - Hyperhidrosis [None]
  - Feeling abnormal [None]
  - Dizziness [None]
  - Oral disorder [None]
  - Head injury [None]
  - Pain [None]
  - Pain in extremity [None]
  - Gait disturbance [None]
  - Drug ineffective [None]
  - Fall [None]
  - Nausea [None]
  - Loss of consciousness [None]
  - Chills [None]

NARRATIVE: CASE EVENT DATE: 20170119
